FAERS Safety Report 8537677-5 (Version None)
Quarter: 2012Q3

REPORT INFORMATION
  Report Type: 
  Country: None (occurrence: None)
  Receive Date: 20120725
  Receipt Date: 20120720
  Transmission Date: 20120928
  Serious: No
  Sender: FDA-Public Use
  Company Number: US-B.I. PHARMACEUTICALS,INC./RIDGEFIELD-2012-BP-16230BP

PATIENT
  Sex: Female

DRUGS (7)
  1. COUMADIN [Concomitant]
     Indication: ARRHYTHMIA
     Route: 048
  2. CLONIDINE [Concomitant]
     Indication: HYPERTENSION
     Dosage: 0.2 MG
     Route: 048
  3. GLIPIZIDE [Concomitant]
     Indication: DIABETES MELLITUS
     Dosage: 10 MG
     Route: 048
  4. SIMVASTATIN [Concomitant]
     Indication: BLOOD CHOLESTEROL INCREASED
     Dosage: 10 MG
     Route: 048
  5. SOTALOL HYDROCHLORIDE [Concomitant]
     Indication: ARRHYTHMIA
     Dosage: 240 MG
     Route: 048
  6. TRADJENTA [Suspect]
     Indication: DIABETES MELLITUS
     Dosage: 5 MG
     Route: 048
     Dates: start: 20120201, end: 20120714
  7. LOSARTAN POTASSIUM [Concomitant]
     Indication: HYPERTENSION
     Dosage: 200 MG
     Route: 048

REACTIONS (7)
  - ARTHRITIS [None]
  - SKIN PAPILLOMA [None]
  - DYSPNOEA [None]
  - DIZZINESS [None]
  - URTICARIA [None]
  - CHEST DISCOMFORT [None]
  - BLOOD GLUCOSE ABNORMAL [None]
